FAERS Safety Report 8646871 (Version 2)
Quarter: 2012Q4

REPORT INFORMATION
  Report Type: 
  Country: JP (occurrence: JP)
  Receive Date: 20120703
  Receipt Date: 20120904
  Transmission Date: 20130627
  Serious: Yes (Hospitalization, Other)
  Sender: FDA-Public Use
  Company Number: JP-GENZYME-THYM-1003299

PATIENT
  Age: 51 Year
  Sex: Female
  Weight: 57 kg

DRUGS (18)
  1. THYMOGLOBULIN [Suspect]
     Indication: APLASTIC ANAEMIA
     Dosage: 145 mg, qd
     Route: 065
     Dates: start: 20110906, end: 20110910
  2. ITRACONAZOLE [Suspect]
     Indication: INFECTION PROPHYLAXIS
     Dosage: UNK
     Route: 065
     Dates: start: 20110906, end: 20111115
  3. METHYLPREDNISOLONE SODIUM SUCCINATE [Concomitant]
     Indication: APLASTIC ANAEMIA
     Dosage: UNK
     Route: 065
     Dates: start: 20110906, end: 20110910
  4. DIPHENHYDRAMINE HYDROCHLORIDE [Concomitant]
     Indication: PROPHYLAXIS
     Dosage: UNK
     Route: 065
     Dates: start: 20110906, end: 20110910
  5. ACETAMINOPHEN [Concomitant]
     Indication: PROPHYLAXIS
     Dosage: UNK
     Route: 065
     Dates: start: 20110906, end: 20110910
  6. FAMOTIDINE [Concomitant]
     Indication: GASTRITIS
     Dosage: UNK
     Route: 065
     Dates: start: 20110906, end: 20110915
  7. IRSOGLADINE MALEATE [Concomitant]
     Indication: GASTRITIS
     Dosage: UNK
     Route: 065
     Dates: start: 20110906
  8. LEVOFLOXACIN [Concomitant]
     Indication: INFECTION PROPHYLAXIS
     Dosage: UNK
     Route: 065
     Dates: start: 20110906, end: 20111115
  9. CICLOSPORIN [Concomitant]
     Indication: APLASTIC ANAEMIA
     Dosage: UNK
     Route: 065
     Dates: start: 20110906
  10. SULFAMETHOPRIM [Concomitant]
     Indication: INFECTION PROPHYLAXIS
     Dosage: UNK
     Route: 065
     Dates: start: 20110906
  11. VALACICLOVIR HYDROCHLORIDE [Concomitant]
     Indication: INFECTION PROPHYLAXIS
     Dosage: UNK
     Route: 065
     Dates: start: 20110906, end: 20111017
  12. ZOPICLONE [Concomitant]
     Indication: INSOMNIA
     Dosage: UNK
     Route: 065
     Dates: start: 20110901, end: 20110928
  13. RABEPRAZOLE SODIUM [Concomitant]
     Indication: GASTRITIS
     Dosage: UNK
     Route: 065
     Dates: start: 20110916
  14. ALUMINIUM HYDROXIDE GEL [Concomitant]
     Indication: GASTRITIS
     Dosage: UNK
     Route: 065
     Dates: start: 20110908, end: 20111115
  15. MAGNESIUM HYDROXIDE [Concomitant]
     Indication: GASTRITIS
     Dosage: UNK
     Route: 065
     Dates: start: 20110908, end: 20111115
  16. DEFERASIROX [Concomitant]
     Indication: PROPHYLAXIS
     Dosage: UNK
     Route: 065
     Dates: start: 20111009
  17. ACICLOVIR [Concomitant]
     Indication: INFECTION PROPHYLAXIS
     Dosage: UNK
     Route: 065
     Dates: start: 20111106
  18. FILGRASTIM [Concomitant]
     Indication: INFECTION PROPHYLAXIS
     Dosage: UNK
     Route: 065
     Dates: start: 20110909, end: 20111002

REACTIONS (6)
  - Hepatic function abnormal [Recovered/Resolved]
  - Oral herpes [Recovered/Resolved]
  - Pyrexia [Recovered/Resolved]
  - Constipation [Recovered/Resolved]
  - C-reactive protein increased [Recovered/Resolved]
  - Hypertension [Recovered/Resolved]
